FAERS Safety Report 4275297-1 (Version None)
Quarter: 2004Q1

REPORT INFORMATION
  Report Type: 
  Country: None (occurrence: None)
  Receive Date: 20040116
  Receipt Date: 20031218
  Transmission Date: 20041129
  Serious: Yes (Other)
  Sender: FDA-Public Use
  Company Number: 46422

PATIENT
  Sex: Female

DRUGS (1)
  1. 12 HOUR PSEUDOEPHEDRINE, 120 MG, PERRIGO COMPANY [Suspect]

REACTIONS (1)
  - OVERDOSE [None]
